FAERS Safety Report 20472176 (Version 1)
Quarter: 2022Q1

REPORT INFORMATION
  Report Type: Other
  Country: BE (occurrence: None)
  Receive Date: 20220214
  Receipt Date: 20220214
  Transmission Date: 20220423
  Serious: Yes (Hospitalization)
  Sender: FDA-Public Use
  Company Number: BE-Square-000047

PATIENT
  Age: 68 Year
  Sex: Male

DRUGS (7)
  1. ACYCLOVIR [Suspect]
     Active Substance: ACYCLOVIR
     Indication: Herpes ophthalmic
     Dosage: 400 MG FIVE TIMES A DAY
  2. BRIVUDINE [Suspect]
     Active Substance: BRIVUDINE
     Indication: Herpes ophthalmic
     Dosage: 0,1% DROPS 8 TIMES A DAY
  3. AZATHIOPRINE [Concomitant]
     Active Substance: AZATHIOPRINE
     Indication: Myasthenia gravis
     Dosage: 100 MG
  4. METHYLPREDNISOLONE [Concomitant]
     Active Substance: METHYLPREDNISOLONE
     Indication: Myasthenia gravis
     Dosage: 8 MG PER DAY
  5. BRIVUDINE [Suspect]
     Active Substance: BRIVUDINE
     Indication: Herpes ophthalmic
     Dosage: 0,1% DROPS 5 TIMES A DAY
  6. METHYLPREDNISOLONE [Concomitant]
     Active Substance: METHYLPREDNISOLONE
     Indication: Myasthenia gravis
     Dosage: 16 MG PER DAY
  7. METHYLPREDNISOLONE [Concomitant]
     Active Substance: METHYLPREDNISOLONE
     Indication: Myasthenia gravis
     Dosage: 64 MG PER DAY

REACTIONS (1)
  - Drug resistance [Unknown]
